FAERS Safety Report 6215163-5 (Version None)
Quarter: 2009Q2

REPORT INFORMATION
  Report Type: 
  Country: None (occurrence: None)
  Receive Date: 20090604
  Receipt Date: 20090525
  Transmission Date: 20091009
  Serious: Yes (Hospitalization)
  Sender: FDA-Public Use
  Company Number: FR-AVENTIS-200911964FR

PATIENT
  Age: 90 Year
  Sex: Male

DRUGS (19)
  1. LOVENOX [Suspect]
     Indication: THROMBOSIS PROPHYLAXIS
     Route: 058
     Dates: start: 20090424, end: 20090511
  2. AUGMENTIN '125' [Suspect]
     Route: 048
     Dates: start: 20090420, end: 20090427
  3. ATHYMIL [Suspect]
     Indication: DEPRESSION
     Route: 048
     Dates: start: 20090425, end: 20090429
  4. ATHYMIL [Suspect]
     Route: 048
     Dates: start: 20090430, end: 20090502
  5. INSULATARD                         /00646002/ [Concomitant]
     Route: 058
  6. AVODART [Concomitant]
     Indication: DRUG USE FOR UNKNOWN INDICATION
     Route: 048
     Dates: end: 20090502
  7. ZOLPIDEM TARTRATE [Concomitant]
     Indication: DRUG USE FOR UNKNOWN INDICATION
     Route: 048
  8. MOXYDAR [Concomitant]
     Indication: DRUG USE FOR UNKNOWN INDICATION
     Route: 048
  9. PARACETAMOL [Concomitant]
     Indication: DRUG USE FOR UNKNOWN INDICATION
  10. SERESTA [Concomitant]
     Indication: DRUG USE FOR UNKNOWN INDICATION
     Dates: start: 20090415
  11. XATRAL                             /00975301/ [Concomitant]
     Indication: DRUG USE FOR UNKNOWN INDICATION
     Route: 048
     Dates: start: 20090415, end: 20090502
  12. CALCIUM WITH VITAMIN D             /01233101/ [Concomitant]
     Indication: DRUG USE FOR UNKNOWN INDICATION
     Route: 048
     Dates: start: 20090422
  13. TAMSULOSINE [Concomitant]
  14. VASTAREL [Concomitant]
  15. XANAX [Concomitant]
     Route: 048
     Dates: start: 20090401
  16. PREXIDINE [Concomitant]
  17. CYTEAL [Concomitant]
  18. LOCOID                             /00028605/ [Concomitant]
  19. HEXALYSE                           /01270001/ [Concomitant]

REACTIONS (3)
  - NEUTROPENIA [None]
  - PYREXIA [None]
  - THROMBOCYTOPENIA [None]
